FAERS Safety Report 5975690-2 (Version None)
Quarter: 2008Q4

REPORT INFORMATION
  Report Type: 
  Country: None (occurrence: None)
  Receive Date: 20081202
  Receipt Date: 20081128
  Transmission Date: 20090506
  Serious: Yes (Death, Other)
  Sender: FDA-Public Use
  Company Number: PHHY2008MX30162

PATIENT
  Sex: Female

DRUGS (1)
  1. DIOVAN HCT [Suspect]
     Indication: HYPERTENSION
     Dosage: 1 TABLET (160/25MG) PER DAY
     Route: 048
     Dates: start: 20070301, end: 20081121

REACTIONS (2)
  - HYPERTENSION [None]
  - RESPIRATORY FAILURE [None]
